FAERS Safety Report 8336796-6 (Version None)
Quarter: 2012Q2

REPORT INFORMATION
  Report Type: 
  Country: None (occurrence: None)
  Receive Date: 20120504
  Receipt Date: 20120424
  Transmission Date: 20120825
  Serious: Yes (Hospitalization)
  Sender: FDA-Public Use
  Company Number: ES-JNJFOC-20120412746

PATIENT
  Age: 43 Year
  Sex: Male

DRUGS (15)
  1. MOXIFLOXACIN [Concomitant]
     Indication: PRODUCT USED FOR UNKNOWN INDICATION
     Route: 065
  2. ASPIRIN [Concomitant]
     Indication: PRODUCT USED FOR UNKNOWN INDICATION
     Route: 065
  3. FOLIC ACID [Concomitant]
     Indication: PRODUCT USED FOR UNKNOWN INDICATION
     Route: 065
  4. SEROQUEL [Concomitant]
     Indication: PRODUCT USED FOR UNKNOWN INDICATION
     Route: 065
  5. RIFABUTIN [Concomitant]
     Indication: PRODUCT USED FOR UNKNOWN INDICATION
     Route: 065
  6. ATORVASTATIN CALCIUM [Concomitant]
     Indication: PRODUCT USED FOR UNKNOWN INDICATION
     Route: 065
  7. OCTREOTIDE ACETATE [Concomitant]
     Indication: PRODUCT USED FOR UNKNOWN INDICATION
     Route: 065
  8. CILOSTAZOL [Concomitant]
     Indication: PRODUCT USED FOR UNKNOWN INDICATION
     Route: 065
  9. METFORMIN HCL [Concomitant]
     Indication: HYPERGLYCAEMIA
     Route: 048
     Dates: start: 20110101
  10. AZITHROMYCIN [Concomitant]
     Indication: HIV INFECTION
     Route: 065
     Dates: start: 20100901
  11. VENLAFAXINE HCL [Concomitant]
     Indication: PRODUCT USED FOR UNKNOWN INDICATION
     Route: 065
  12. PREDNISONE [Interacting]
     Indication: LYMPHANGIECTASIA
     Route: 048
     Dates: start: 20101125
  13. PREDNISONE [Interacting]
     Route: 048
     Dates: start: 20100901, end: 20101101
  14. RITONAVIR [Interacting]
     Indication: HIV INFECTION
     Route: 048
     Dates: start: 20100901
  15. PREZISTA [Suspect]
     Indication: HIV INFECTION
     Route: 048
     Dates: start: 20100901

REACTIONS (2)
  - HYPERGLYCAEMIA [None]
  - DRUG INTERACTION [None]
